FAERS Safety Report 14382549 (Version 1)
Quarter: 2018Q1

REPORT INFORMATION
  Report Type: Spontaneous
  Country: HK (occurrence: HK)
  Receive Date: 20180112
  Receipt Date: 20180112
  Transmission Date: 20180509
  Serious: Yes (Death, Other)
  Sender: FDA-Public Use
  Company Number: HK-IMPAX LABORATORIES, INC-2017-IPXL-03790

PATIENT
  Age: 71 Year
  Sex: Female

DRUGS (7)
  1. PHENYTOIN. [Suspect]
     Active Substance: PHENYTOIN
     Indication: DRUG WITHDRAWAL CONVULSIONS
     Dosage: UNK
     Route: 042
  2. DIVALPROEX SODIUM ER [Suspect]
     Active Substance: DIVALPROEX SODIUM
     Indication: STATUS EPILEPTICUS
     Dosage: 400 MG, EVERY 8HR
     Route: 065
  3. MIDAZOLAM [Suspect]
     Active Substance: MIDAZOLAM HYDROCHLORIDE
     Dosage: UNK
     Route: 042
  4. PROPOFOL. [Suspect]
     Active Substance: PROPOFOL
     Indication: DRUG WITHDRAWAL CONVULSIONS
     Dosage: UNK
     Route: 042
  5. DIVALPROEX SODIUM ER [Suspect]
     Active Substance: DIVALPROEX SODIUM
     Dosage: 1200 MG, DAILY
     Route: 065
  6. NIMODIPINE. [Suspect]
     Active Substance: NIMODIPINE
     Indication: INTRACRANIAL ANEURYSM
     Dosage: UNK
     Route: 065
  7. MIDAZOLAM [Suspect]
     Active Substance: MIDAZOLAM HYDROCHLORIDE
     Indication: STATUS EPILEPTICUS
     Dosage: UNK
     Route: 042

REACTIONS (5)
  - Septic shock [Fatal]
  - Pneumonia [Fatal]
  - Hyperammonaemic encephalopathy [Fatal]
  - Multiple organ dysfunction syndrome [Fatal]
  - Drug withdrawal convulsions [Unknown]
